FAERS Safety Report 9844835 (Version 1)
Quarter: 2014Q1

REPORT INFORMATION
  Report Type: Spontaneous
  Country: US (occurrence: None)
  Receive Date: 20140123
  Receipt Date: 20140123
  Transmission Date: 20141002
  Serious: No
  Sender: FDA-Public Use
  Company Number: None

PATIENT
  Age: 50 Year
  Sex: Female
  Weight: 58.97 kg

DRUGS (2)
  1. LINZESS [Suspect]
     Indication: CONSTIPATION
     Dosage: 1 PILL ONCE DAILY TAKEN BY MOUTH
     Route: 048
     Dates: start: 20140102, end: 20140109
  2. LINZESS [Suspect]
     Indication: ABDOMINAL DISTENSION
     Dosage: 1 PILL ONCE DAILY TAKEN BY MOUTH
     Route: 048
     Dates: start: 20140102, end: 20140109

REACTIONS (1)
  - Myalgia [None]
